FAERS Safety Report 7012436-3 (Version None)
Quarter: 2010Q3

REPORT INFORMATION
  Report Type: 
  Country: None (occurrence: None)
  Receive Date: 20100924
  Receipt Date: 20100917
  Transmission Date: 20110219
  Serious: Yes (Other)
  Sender: FDA-Public Use
  Company Number: AU-JNJFOC-20100400676

PATIENT
  Age: 7 Decade
  Sex: Female

DRUGS (3)
  1. DURAGESIC-100 [Suspect]
     Indication: SURGERY
     Dosage: SHE USES 2 X 100 MCG PATCH
     Route: 062
  2. ORDINE [Concomitant]
  3. MS CONTIN [Concomitant]

REACTIONS (5)
  - BREAKTHROUGH PAIN [None]
  - DRUG EFFECT DECREASED [None]
  - OFF LABEL USE [None]
  - PRODUCT QUALITY ISSUE [None]
  - WRONG TECHNIQUE IN DRUG USAGE PROCESS [None]
